FAERS Safety Report 9825182 (Version 1)
Quarter: 2013Q4

REPORT INFORMATION
  Report Type: Spontaneous
  Country: US (occurrence: None)
  Receive Date: 20131028
  Receipt Date: 20131028
  Transmission Date: 20140711
  Serious: Yes (Other)
  Sender: FDA-Public Use
  Company Number: 2013US001736

PATIENT
  Age: 73 Year
  Sex: Male

DRUGS (1)
  1. ICLUSIG [Suspect]
     Indication: MYELOID LEUKAEMIA
     Route: 048
     Dates: start: 20130506

REACTIONS (2)
  - Chills [None]
  - Constipation [None]
